FAERS Safety Report 9470457 (Version 1)
Quarter: 2013Q3

REPORT INFORMATION
  Report Type: Spontaneous
  Country: US (occurrence: US)
  Receive Date: 20130822
  Receipt Date: 20130822
  Transmission Date: 20140515
  Serious: Yes (Other)
  Sender: FDA-Public Use
  Company Number: US-TEVA-426994USA

PATIENT
  Age: 27 Year
  Sex: Female
  Weight: 54.48 kg

DRUGS (2)
  1. PARAGARD 380A [Suspect]
     Indication: CONTRACEPTION
     Route: 015
     Dates: start: 20130801, end: 20130809
  2. PRENATAL VITAMINS [Concomitant]

REACTIONS (2)
  - Device dislocation [Recovered/Resolved]
  - Pelvic pain [Recovered/Resolved]
